FAERS Safety Report 4352149-X (Version None)
Quarter: 2004Q2

REPORT INFORMATION
  Report Type: 
  Country: None (occurrence: None)
  Receive Date: 20040429
  Receipt Date: 20040429
  Transmission Date: 20050107
  Serious: Yes (Other)
  Sender: FDA-Public Use
  Company Number: None

PATIENT
  Age: 49 Year
  Sex: Female
  Weight: 58.9676 kg

DRUGS (2)
  1. DEXAMETHASONE [Suspect]
     Dosage: 10 MG IVPB
     Route: 042
     Dates: start: 20040426
  2. CARBOPLATIN [Suspect]
     Dosage: 130 MG IVPB
     Route: 042
     Dates: start: 20040426

REACTIONS (4)
  - ERYTHEMA [None]
  - FLUSHING [None]
  - OEDEMA [None]
  - RHINITIS [None]
